FAERS Safety Report 6882092-3 (Version None)
Quarter: 2010Q3

REPORT INFORMATION
  Report Type: 
  Country: None (occurrence: None)
  Receive Date: 20100728
  Receipt Date: 20100728
  Transmission Date: 20110219
  Serious: Yes (Hospitalization)
  Sender: FDA-Public Use
  Company Number: None

PATIENT
  Sex: Male
  Weight: 125 kg

DRUGS (2)
  1. IFOSFAMIDE [Suspect]
     Dosage: 18000 MG
  2. MESNA [Suspect]
     Dosage: 14400 MG

REACTIONS (4)
  - FEBRILE NEUTROPENIA [None]
  - IMPAIRED HEALING [None]
  - PSEUDOMONAS INFECTION [None]
  - SKIN GRAFT [None]
